FAERS Safety Report 15186785 (Version 2)
Quarter: 2019Q1

REPORT INFORMATION
  Report Type: Report from Study
  Country: US (occurrence: US)
  Receive Date: 20180723
  Receipt Date: 20190130
  Transmission Date: 20190417
  Serious: No
  Sender: FDA-Public Use
  Company Number: US-EXELIXIS-CABO-18012961

PATIENT
  Sex: Female
  Weight: 42.16 kg

DRUGS (7)
  1. COMETRIQ [Suspect]
     Active Substance: CABOZANTINIB S-MALATE
     Dosage: 20 MG, QD
     Dates: end: 201806
  2. BUSPAR [Concomitant]
     Active Substance: BUSPIRONE HYDROCHLORIDE
     Dosage: UNK
  3. COMETRIQ [Suspect]
     Active Substance: CABOZANTINIB S-MALATE
     Dosage: UNK (PATIENT TAKING 40MG ALTERNATING WITH 20MG)
  4. COMETRIQ [Suspect]
     Active Substance: CABOZANTINIB S-MALATE
     Indication: THYROID CANCER
     Dosage: 20 MG, QD
     Route: 048
     Dates: start: 20180320, end: 20180407
  5. CARVEDILOL. [Concomitant]
     Active Substance: CARVEDILOL
     Dosage: UNK
  6. COMETRIQ [Suspect]
     Active Substance: CABOZANTINIB S-MALATE
     Dosage: 40 MG, QD
     Route: 048
     Dates: start: 20180413
  7. SYNTHROID [Concomitant]
     Active Substance: LEVOTHYROXINE SODIUM
     Dosage: UNK

REACTIONS (11)
  - Fatigue [Unknown]
  - Diarrhoea [Recovering/Resolving]
  - Somnolence [Unknown]
  - Lip swelling [Unknown]
  - Nausea [Recovering/Resolving]
  - Pharyngeal oedema [Not Recovered/Not Resolved]
  - Onychoclasis [Unknown]
  - Cardiac failure congestive [Unknown]
  - Ear discomfort [Unknown]
  - Osteopenia [Unknown]
  - Paraesthesia [Unknown]
